FAERS Safety Report 20540400 (Version 1)
Quarter: 2022Q1

REPORT INFORMATION
  Report Type: Spontaneous
  Country: TW (occurrence: TW)
  Receive Date: 20220302
  Receipt Date: 20220302
  Transmission Date: 20220423
  Serious: Yes (Death)
  Sender: FDA-Public Use
  Company Number: TW-JNJFOC-20211157190

PATIENT
  Age: 82 Year
  Sex: Female

DRUGS (6)
  1. ULTRACET [Suspect]
     Active Substance: ACETAMINOPHEN\TRAMADOL HYDROCHLORIDE
     Indication: Anaemia
     Route: 065
  2. ULTRACET [Suspect]
     Active Substance: ACETAMINOPHEN\TRAMADOL HYDROCHLORIDE
     Indication: Pain
  3. QUETIAPINE [Suspect]
     Active Substance: QUETIAPINE
     Indication: Anaemia
     Route: 065
  4. QUETIAPINE [Suspect]
     Active Substance: QUETIAPINE
     Indication: Pain
  5. FAMOTIDINE [Suspect]
     Active Substance: FAMOTIDINE
     Indication: Anaemia
     Route: 065
  6. FAMOTIDINE [Suspect]
     Active Substance: FAMOTIDINE
     Indication: Pain

REACTIONS (1)
  - Stevens-Johnson syndrome [Fatal]
